FAERS Safety Report 25021720 (Version 3)
Quarter: 2025Q2

REPORT INFORMATION
  Report Type: Spontaneous
  Country: US (occurrence: US)
  Receive Date: 20250228
  Receipt Date: 20250604
  Transmission Date: 20250717
  Serious: Yes (Other)
  Sender: CSL BEHRING
  Company Number: US-BEH-2025196941

PATIENT
  Age: 4 Year
  Sex: Male

DRUGS (9)
  1. IDELVION [Suspect]
     Active Substance: COAGULATION FACTOR IX RECOMBINANT HUMAN
     Indication: Factor IX deficiency
     Dosage: 875-1050 UNITS SLOW IV PUSH EVERY 7 DAYS FOR PROPHYLAXIS
     Route: 042
     Dates: start: 202204
  2. IDELVION [Suspect]
     Active Substance: COAGULATION FACTOR IX RECOMBINANT HUMAN
     Indication: Factor IX deficiency
     Dosage: 875-1050 UNITS SLOW IV PUSH EVERY 7 DAYS FOR PROPHYLAXIS
     Route: 042
     Dates: start: 202204
  3. IDELVION [Suspect]
     Active Substance: COAGULATION FACTOR IX RECOMBINANT HUMAN
     Indication: Prophylaxis
     Route: 042
  4. IDELVION [Suspect]
     Active Substance: COAGULATION FACTOR IX RECOMBINANT HUMAN
     Indication: Prophylaxis
     Route: 042
  5. IDELVION [Suspect]
     Active Substance: COAGULATION FACTOR IX RECOMBINANT HUMAN
     Indication: Haemorrhage
     Route: 042
     Dates: start: 202204
  6. IDELVION [Suspect]
     Active Substance: COAGULATION FACTOR IX RECOMBINANT HUMAN
     Indication: Haemorrhage
     Route: 042
     Dates: start: 202204
  7. IDELVION [Suspect]
     Active Substance: COAGULATION FACTOR IX RECOMBINANT HUMAN
     Route: 042
     Dates: start: 202204
  8. IDELVION [Suspect]
     Active Substance: COAGULATION FACTOR IX RECOMBINANT HUMAN
     Route: 042
     Dates: start: 202204
  9. AMINOCAPROIC ACID [Concomitant]
     Active Substance: AMINOCAPROIC ACID
     Route: 048

REACTIONS (10)
  - Haemorrhage [Unknown]
  - Haematoma [Unknown]
  - Fall [Unknown]
  - Mass [Unknown]
  - Infusion site swelling [Unknown]
  - Head injury [Unknown]
  - Fall [Unknown]
  - Head injury [Unknown]
  - Head injury [Unknown]
  - Head injury [Unknown]

NARRATIVE: CASE EVENT DATE: 20250317
